FAERS Safety Report 8762858 (Version 2)
Quarter: 2012Q4

REPORT INFORMATION
  Report Type: 
  Country: US (occurrence: US)
  Receive Date: 20120829
  Receipt Date: 20120925
  Transmission Date: 20130627
  Serious: No
  Sender: FDA-Public Use
  Company Number: US-PFIZER INC-2012211481

PATIENT
  Age: 83 Year
  Sex: Male
  Weight: 129 kg

DRUGS (3)
  1. LYRICA [Suspect]
     Indication: NEUROPATHY PERIPHERAL
     Dosage: UNK
     Route: 048
  2. LYRICA [Suspect]
     Dosage: 50 mg, 3x/day
     Route: 048
     Dates: start: 20120823, end: 20120825
  3. LYRICA [Suspect]
     Dosage: UNK

REACTIONS (4)
  - Dizziness [Recovering/Resolving]
  - Gait disturbance [Recovering/Resolving]
  - Vision blurred [Unknown]
  - Dysstasia [Unknown]
